FAERS Safety Report 8406256-2 (Version None)
Quarter: 2012Q2

REPORT INFORMATION
  Report Type: 
  Country: None (occurrence: None)
  Receive Date: 20120604
  Receipt Date: 20120528
  Transmission Date: 20120825
  Serious: Yes (Hospitalization, Other)
  Sender: FDA-Public Use
  Company Number: PHHY2012BR019192

PATIENT
  Sex: Female
  Weight: 77 kg

DRUGS (5)
  1. CLONAZEPAM [Concomitant]
     Indication: ANXIETY
     Dosage: 1 DF, UNK
  2. CLOPIDOGREL [Concomitant]
     Dosage: 75 MG, DAILY
  3. EXFORGE [Suspect]
     Indication: HYPERTENSION
     Dosage: 2 DF (320/10 MG), DAILY
     Route: 048
  4. ATORVASTATIN CALCIUM [Concomitant]
     Dosage: 40 MG, QD
     Dates: start: 20120101
  5. ASPIRIN [Concomitant]
     Dosage: 100 MG, QD

REACTIONS (5)
  - ARTERIAL OCCLUSIVE DISEASE [None]
  - CHEST PAIN [None]
  - GASTRITIS [None]
  - MYOCARDIAL INFARCTION [None]
  - BLOOD PRESSURE INADEQUATELY CONTROLLED [None]
